FAERS Safety Report 10896783 (Version 1)
Quarter: 2015Q1

REPORT INFORMATION
  Report Type: Spontaneous
  Country: US (occurrence: US)
  Receive Date: 20150309
  Receipt Date: 20150309
  Transmission Date: 20150721
  Serious: Yes (Death)
  Sender: FDA-Public Use
  Company Number: US-BANPHARM-20153668

PATIENT
  Age: 44 Year
  Sex: Female

DRUGS (7)
  1. TRAMADOL [Suspect]
     Active Substance: TRAMADOL
  2. ETHANOL [Suspect]
     Active Substance: ALCOHOL
  3. AMITRIPTYLINE [Suspect]
     Active Substance: AMITRIPTYLINE
  4. LORAZEPAM. [Suspect]
     Active Substance: LORAZEPAM
  5. DIPHENHYDRAMINE UNKNOWN PRODUCT [Suspect]
     Active Substance: DIPHENHYDRAMINE
  6. AMPHETAMINE [Suspect]
     Active Substance: AMPHETAMINE
  7. BUTALBITAL [Suspect]
     Active Substance: BUTALBITAL

REACTIONS (1)
  - Completed suicide [Fatal]
